FAERS Safety Report 4514393-8 (Version None)
Quarter: 2004Q4

REPORT INFORMATION
  Report Type: 
  Country: None (occurrence: None)
  Receive Date: 20041124
  Receipt Date: 20041111
  Transmission Date: 20050328
  Serious: Yes (Hospitalization)
  Sender: FDA-Public Use
  Company Number: MEDI-0002171

PATIENT
  Age: 12 Month
  Sex: Male

DRUGS (1)
  1. SYNAGIS [Suspect]
     Indication: ANTIVIRAL PROPHYLAXIS
     Dosage: 85 MG, 1 IN 1 30 D, INTRAMUSCULAR
     Route: 030
     Dates: start: 20031021, end: 20031021

REACTIONS (7)
  - BRONCHITIS [None]
  - C-REACTIVE PROTEIN INCREASED [None]
  - CONDITION AGGRAVATED [None]
  - LARYNGEAL STENOSIS [None]
  - STRIDOR [None]
  - VIRAL INFECTION [None]
  - WHEEZING [None]
